FAERS Safety Report 24798128 (Version 4)
Quarter: 2025Q1

REPORT INFORMATION
  Report Type: Spontaneous
  Country: IN (occurrence: IN)
  Receive Date: 20250102
  Receipt Date: 20250313
  Transmission Date: 20250409
  Serious: Yes (Hospitalization)
  Sender: ROCHE
  Company Number: IN-ROCHE-3572846

PATIENT
  Age: 55 Year
  Sex: Female
  Weight: 54.3 kg

DRUGS (1)
  1. TECENTRIQ [Suspect]
     Active Substance: ATEZOLIZUMAB
     Indication: Endometrial adenocarcinoma
     Dosage: 5TH CYCLE INTERVAL: 18 DAYS?8TH CYCLE INTERVAL: 23RD DAY?9TH CYCLE INTERVAL: 26TH DAY
     Route: 042
     Dates: start: 20240521

REACTIONS (14)
  - Red blood cell transfusion [Unknown]
  - Spinal column injury [Unknown]
  - Lymphadenopathy [Unknown]
  - Haemoglobin decreased [Unknown]
  - Radiotherapy to lymph nodes [Unknown]
  - Off label use [Unknown]
  - Off label use [Unknown]
  - Fall [Unknown]
  - Vasodilatation [Unknown]
  - Hypertension [Unknown]
  - Heart rate increased [Unknown]
  - Cough [Unknown]
  - Peripheral swelling [Unknown]
  - Body temperature decreased [Unknown]

NARRATIVE: CASE EVENT DATE: 20240702
